FAERS Safety Report 19089071 (Version 1)
Quarter: 2021Q2

REPORT INFORMATION
  Report Type: Spontaneous
  Country: TR (occurrence: TR)
  Receive Date: 20210403
  Receipt Date: 20210403
  Transmission Date: 20210717
  Serious: Yes (Hospitalization)
  Sender: FDA-Public Use
  Company Number: TR-LUPIN PHARMACEUTICALS INC.-2021-04220

PATIENT
  Age: 42 Year
  Sex: Female

DRUGS (6)
  1. LEVOTHYROXINE. [Interacting]
     Active Substance: LEVOTHYROXINE
     Dosage: 1000 MICROGRAM, QD
     Route: 065
  2. LEVOTHYROXINE. [Interacting]
     Active Substance: LEVOTHYROXINE
     Dosage: 600 MICROGRAM, QD
     Route: 065
  3. ESOMEPRAZOLE. [Interacting]
     Active Substance: ESOMEPRAZOLE MAGNESIUM
     Indication: PRODUCT USED FOR UNKNOWN INDICATION
     Dosage: UNK
     Route: 065
  4. LEVOTHYROXINE. [Suspect]
     Active Substance: LEVOTHYROXINE
     Indication: HYPOTHYROIDISM
     Dosage: 100 MICROGRAM, QD
     Route: 065
  5. FERROUS SULFATE. [Interacting]
     Active Substance: FERROUS SULFATE
     Indication: HAEMOGLOBIN ABNORMAL
     Dosage: UNK
     Route: 065
  6. FERROUS SULFATE. [Interacting]
     Active Substance: FERROUS SULFATE
     Indication: SERUM FERRITIN ABNORMAL

REACTIONS (3)
  - Drug-disease interaction [Unknown]
  - Drug interaction [Unknown]
  - Drug ineffective [Unknown]
